FAERS Safety Report 6221677-4 (Version None)
Quarter: 2009Q2

REPORT INFORMATION
  Report Type: 
  Country: None (occurrence: None)
  Receive Date: 20090608
  Receipt Date: 20090602
  Transmission Date: 20091009
  Serious: Yes (Other)
  Sender: FDA-Public Use
  Company Number: A0788221A

PATIENT
  Age: 28 Year
  Sex: Female

DRUGS (2)
  1. UREA PEROXIDE [Suspect]
     Dosage: SINGLE DOSE/ AURAL
     Route: 001
  2. MULTI-VITAMIN [Concomitant]

REACTIONS (2)
  - DEAFNESS UNILATERAL [None]
  - DRUG ADMINISTRATION ERROR [None]
